FAERS Safety Report 16567553 (Version 1)
Quarter: 2019Q3

REPORT INFORMATION
  Report Type: Spontaneous
  Country: JP (occurrence: JP)
  Receive Date: 20190712
  Receipt Date: 20190712
  Transmission Date: 20191004
  Serious: Yes (Other)
  Sender: FDA-Public Use
  Company Number: JP-ASTRAZENECA-2019SE62450

PATIENT
  Age: 79 Year
  Sex: Male

DRUGS (1)
  1. IMFINZI [Suspect]
     Active Substance: DURVALUMAB
     Indication: NON-SMALL CELL LUNG CANCER
     Dosage: 10 MG/KG EVERY 2 WEEKS, 10 COURSES
     Route: 041

REACTIONS (2)
  - Radiation pneumonitis [Recovered/Resolved]
  - Pruritus [Recovered/Resolved]
